FAERS Safety Report 11278335 (Version 3)
Quarter: 2015Q3

REPORT INFORMATION
  Report Type: Report from Study
  Country: CA (occurrence: CA)
  Receive Date: 20150717
  Receipt Date: 20150907
  Transmission Date: 20151125
  Serious: Yes (Hospitalization)
  Sender: FDA-Public Use
  Company Number: CA-ROCHE-1600626

PATIENT
  Age: 67 Year
  Sex: Female

DRUGS (9)
  1. ESBRIET [Suspect]
     Active Substance: PIRFENIDONE
     Route: 048
     Dates: start: 20141231
  2. ESBRIET [Suspect]
     Active Substance: PIRFENIDONE
     Dosage: 534 MG - 267 MG - 267 MG
     Route: 048
     Dates: start: 20150706, end: 20150723
  3. ESBRIET [Suspect]
     Active Substance: PIRFENIDONE
     Indication: IDIOPATHIC PULMONARY FIBROSIS
     Route: 048
     Dates: start: 20141217
  4. ESBRIET [Suspect]
     Active Substance: PIRFENIDONE
     Route: 048
     Dates: start: 20150109, end: 20150624
  5. ROPINIROLE. [Concomitant]
     Active Substance: ROPINIROLE
     Route: 065
  6. ESBRIET [Suspect]
     Active Substance: PIRFENIDONE
     Route: 048
     Dates: start: 20141224
  7. IRBESARTAN. [Concomitant]
     Active Substance: IRBESARTAN
     Dosage: 150/12.5 DAILY
     Route: 065
  8. SYNTHROID [Concomitant]
     Active Substance: LEVOTHYROXINE SODIUM
     Route: 065
  9. ZOPICLONE [Concomitant]
     Active Substance: ZOPICLONE
     Dosage: AT BEDTIME
     Route: 065

REACTIONS (2)
  - Dehydration [Unknown]
  - Rash [Not Recovered/Not Resolved]

NARRATIVE: CASE EVENT DATE: 201505
